FAERS Safety Report 4353593-7 (Version None)
Quarter: 2004Q2

REPORT INFORMATION
  Report Type: 
  Country: None (occurrence: None)
  Receive Date: 20040427
  Receipt Date: 20040412
  Transmission Date: 20050107
  Serious: Yes (Death)
  Sender: FDA-Public Use
  Company Number: 2004S1000243

PATIENT
  Age: 62 Year
  Sex: Female

DRUGS (7)
  1. CLOZAPINE [Suspect]
     Indication: SCHIZOPHRENIA
     Dosage: 75 MG/DAY, ORAL
     Route: 048
     Dates: start: 20030901
  2. CLOZAPINE [Suspect]
     Indication: SCHIZOPHRENIA
     Dosage: 200 MG/DAY, ORAL
     Route: 048
     Dates: start: 20030901
  3. FLUVOXAMINE MALEATE [Concomitant]
  4. BUSPIRONE HCL [Concomitant]
  5. VENLATAXINE [Concomitant]
  6. LEVOTHYROXINE [Concomitant]
  7. ZIPRASIDONE [Concomitant]

REACTIONS (1)
  - COMPLETED SUICIDE [None]
